FAERS Safety Report 5067624-2 (Version None)
Quarter: 2006Q3

REPORT INFORMATION
  Report Type: 
  Country: None (occurrence: None)
  Receive Date: 20060731
  Receipt Date: 20060719
  Transmission Date: 20061208
  Serious: Yes (Hospitalization)
  Sender: FDA-Public Use
  Company Number: 200613037BCC

PATIENT
  Age: 86 Year
  Sex: Female
  Weight: 56.6996 kg

DRUGS (4)
  1. ALKA-SELTZER HEARTBURN RELIEF [Suspect]
     Indication: CHEST PAIN
     Dosage: 2000 MG, QD, ORAL
     Route: 048
     Dates: start: 20060704, end: 20060706
  2. ALKA-SELTZER HEARTBURN RELIEF [Suspect]
     Indication: DYSPEPSIA
     Dosage: 2000 MG, QD, ORAL
     Route: 048
     Dates: start: 20060704, end: 20060706
  3. HEART MEDICATION [Concomitant]
  4. BLOOD PRESSURE MEDICATION [Concomitant]

REACTIONS (1)
  - MYOCARDIAL INFARCTION [None]
